FAERS Safety Report 7914474-2 (Version None)
Quarter: 2011Q4

REPORT INFORMATION
  Report Type: 
  Country: None (occurrence: None)
  Receive Date: 20111115
  Receipt Date: 20111104
  Transmission Date: 20120403
  Serious: Yes (Other)
  Sender: FDA-Public Use
  Company Number: FR-SANOFI-AVENTIS-2011SA072589

PATIENT
  Age: 35 Year
  Sex: Female
  Weight: 44 kg

DRUGS (1)
  1. RIFAMPIN AND ISONIAZID [Suspect]
     Indication: PULMONARY TUBERCULOSIS
     Dosage: DOSE:2 UNIT(S)
     Route: 048
     Dates: start: 20110704, end: 20110901

REACTIONS (1)
  - MYALGIA [None]
